FAERS Safety Report 7619812-6 (Version None)
Quarter: 2011Q3

REPORT INFORMATION
  Report Type: 
  Country: None (occurrence: None)
  Receive Date: 20110719
  Receipt Date: 20110705
  Transmission Date: 20111222
  Serious: Yes (Other)
  Sender: FDA-Public Use
  Company Number: NL-SANOFI-AVENTIS-2011SA044104

PATIENT
  Age: 74 Year
  Sex: Male
  Weight: 90 kg

DRUGS (11)
  1. EZETIMIBE [Concomitant]
     Route: 065
  2. LOSARTAN [Concomitant]
     Route: 065
     Dates: start: 20110217
  3. CLOPIDOGREL [Concomitant]
     Route: 065
  4. LOSARTAN [Concomitant]
     Route: 065
  5. ATORVASTATIN [Concomitant]
     Route: 065
  6. DRONEDARONE HCL [Suspect]
     Indication: ATRIAL FIBRILLATION
     Route: 048
  7. ASPIRIN [Concomitant]
     Route: 065
  8. ISOSORBIDE MONONITRATE [Concomitant]
     Route: 065
  9. METOPROLOL TARTRATE [Concomitant]
     Route: 065
  10. PANTOPRAZOLE SODIUM [Concomitant]
     Route: 065
  11. ACENOCOUMAROL [Concomitant]
     Route: 065

REACTIONS (1)
  - CARDIAC FAILURE [None]
